FAERS Safety Report 7432767-2 (Version None)
Quarter: 2011Q2

REPORT INFORMATION
  Report Type: 
  Country: None (occurrence: None)
  Receive Date: 20110422
  Receipt Date: 20090910
  Transmission Date: 20111010
  Serious: Yes (Hospitalization)
  Sender: FDA-Public Use
  Company Number: B0573947B

PATIENT
  Sex: Female
  Weight: 80 kg

DRUGS (3)
  1. MELPHALAN [Suspect]
     Indication: MULTIPLE MYELOMA
     Dosage: 14MG PER DAY
     Route: 048
     Dates: start: 20080916
  2. PREDNISONE [Suspect]
     Indication: MULTIPLE MYELOMA
     Dosage: 160MG PER DAY
     Route: 048
     Dates: start: 20080916
  3. LENALIDOMIDE [Suspect]
     Indication: MULTIPLE MYELOMA
     Dosage: 10MG PER DAY
     Route: 048
     Dates: start: 20080916

REACTIONS (6)
  - DIARRHOEA [None]
  - FEBRILE NEUTROPENIA [None]
  - THROMBOCYTOPENIA [None]
  - NEUTROPENIA [None]
  - URINARY TRACT INFECTION [None]
  - COUGH [None]
